FAERS Safety Report 11071283 (Version 1)
Quarter: 2015Q2

REPORT INFORMATION
  Report Type: Spontaneous
  Country: DK (occurrence: None)
  Receive Date: 20150424
  Receipt Date: 20150424
  Transmission Date: 20150821
  Serious: Yes (Death)
  Sender: FDA-Public Use
  Company Number: DK-ZYDUS-007715

PATIENT
  Age: 57 Year
  Sex: Female

DRUGS (2)
  1. RISPERIDONE (RISPERIDONE) [Suspect]
     Active Substance: RISPERIDONE
  2. ZOPICLONE (ZOPICLONE) [Suspect]
     Active Substance: ZOPICLONE

REACTIONS (4)
  - Blood alcohol increased [None]
  - Toxicity to various agents [None]
  - Medication residue present [None]
  - Drug level above therapeutic [None]
